FAERS Safety Report 16954516 (Version 1)
Quarter: 2019Q4

REPORT INFORMATION
  Report Type: Spontaneous
  Country: US (occurrence: US)
  Receive Date: 20191023
  Receipt Date: 20191023
  Transmission Date: 20200122
  Serious: Yes (Other)
  Sender: FDA-Public Use
  Company Number: US-BIOGEN-2015BI023313

PATIENT
  Age: 68 Year
  Sex: Female

DRUGS (3)
  1. TECFIDERA [Suspect]
     Active Substance: DIMETHYL FUMARATE
     Dosage: STARTING DOSE
     Route: 048
  2. TECFIDERA [Suspect]
     Active Substance: DIMETHYL FUMARATE
     Dosage: MAINTENANCE DOSE
     Route: 048
  3. TECFIDERA [Suspect]
     Active Substance: DIMETHYL FUMARATE
     Indication: MULTIPLE SCLEROSIS
     Dosage: MAINTENANCE DOSE
     Route: 048
     Dates: start: 20150110, end: 20150201

REACTIONS (32)
  - Hyperhidrosis [Unknown]
  - Gastric disorder [Recovered/Resolved]
  - Feeling hot [Unknown]
  - Anxiety [Unknown]
  - Rosacea [Unknown]
  - Aortic disorder [Unknown]
  - Vomiting [Unknown]
  - Frustration tolerance decreased [Unknown]
  - Dehydration [Unknown]
  - Abdominal pain upper [Recovered/Resolved]
  - Fear [Unknown]
  - Pain [Unknown]
  - Urinary tract infection [Unknown]
  - Multiple sclerosis [Unknown]
  - Irritable bowel syndrome [Recovered/Resolved]
  - Intentional product misuse [Unknown]
  - Dysuria [Unknown]
  - Nausea [Recovered/Resolved]
  - Drug intolerance [Unknown]
  - Flushing [Unknown]
  - Crohn^s disease [Recovered/Resolved]
  - Weight decreased [Unknown]
  - Memory impairment [Unknown]
  - Stress [Unknown]
  - Urinary incontinence [Unknown]
  - Malaise [Unknown]
  - Band sensation [Unknown]
  - Hypertension [Unknown]
  - Gastrooesophageal reflux disease [Not Recovered/Not Resolved]
  - Urine output decreased [Unknown]
  - Hypophagia [Unknown]
  - Burning sensation [Unknown]

NARRATIVE: CASE EVENT DATE: 2014
